FAERS Safety Report 10200957 (Version 1)
Quarter: 2014Q2

REPORT INFORMATION
  Report Type: Report from Study
  Country: US (occurrence: US)
  Receive Date: 20140528
  Receipt Date: 20140528
  Transmission Date: 20141212
  Serious: Yes (Other)
  Sender: FDA-Public Use
  Company Number: PHEH2014US010392

PATIENT
  Age: 63 Year
  Sex: Female

DRUGS (12)
  1. ZOMETA [Suspect]
     Dosage: 4 MG, PER 5 MG VIAL
  2. ROBITUSSIN//DEXTROMETHORPHAN HYDROBROMIDE [Suspect]
     Dosage: UNK UKN, UNK
  3. DEXAMETASON [Concomitant]
     Dosage: UNK UKN, UNK
  4. BENADRYL//DIPHENHYDRAMINE HYDROCHLORIDE [Concomitant]
     Dosage: UNK UKN, UNK
  5. ADVAIR DISKUS [Concomitant]
     Dosage: UNK UKN, UNK
  6. TOBRAMYCIN [Concomitant]
     Dosage: UNK UKN, UNK
  7. VIT B COMPLEX [Concomitant]
     Dosage: UNK UKN, UNK
  8. CALCIUM [Concomitant]
     Dosage: UNK UKN, UNK
  9. MULTIVIT//VITAMINS NOS [Concomitant]
     Dosage: UNK UKN, UNK
  10. LEVOXYL [Concomitant]
     Dosage: UNK UKN, UNK
  11. REVLIMID [Concomitant]
     Dosage: UNK UKN, UNK
  12. VITAMIN D [Concomitant]
     Dosage: UNK UKN, UNK

REACTIONS (2)
  - Bronchitis [Unknown]
  - Musculoskeletal chest pain [Recovered/Resolved]
